FAERS Safety Report 20065665 (Version 6)
Quarter: 2022Q1

REPORT INFORMATION
  Report Type: Spontaneous
  Country: JP (occurrence: JP)
  Receive Date: 20211113
  Receipt Date: 20220326
  Transmission Date: 20220423
  Serious: Yes (Other)
  Sender: FDA-Public Use
  Company Number: JP-UNITED THERAPEUTICS-UNT-2021-021471

PATIENT
  Age: 25 Month
  Sex: Female

DRUGS (20)
  1. UNITUXIN [Suspect]
     Active Substance: DINUTUXIMAB
     Indication: Neuroblastoma
     Dosage: UNK, CYCLICAL (CYCLE 1)
     Route: 041
     Dates: start: 20210927, end: 20210930
  2. UNITUXIN [Suspect]
     Active Substance: DINUTUXIMAB
     Dosage: UNK, CYCLICAL (CYCLE 2)
     Route: 041
     Dates: start: 20211101, end: 20211102
  3. UNITUXIN [Suspect]
     Active Substance: DINUTUXIMAB
     Dosage: UNK, CYCLICAL (CYCLE 3)
     Route: 041
     Dates: start: 20211129, end: 20211202
  4. UNITUXIN [Suspect]
     Active Substance: DINUTUXIMAB
     Dosage: UNK, CYCLICAL (CYCLE 4)
     Route: 041
     Dates: start: 20220104, end: 20220107
  5. UNITUXIN [Suspect]
     Active Substance: DINUTUXIMAB
     Dosage: UNK, CYCLICAL (CYCLE 5)
     Route: 041
     Dates: start: 20220207, end: 20220210
  6. UNITUXIN [Suspect]
     Active Substance: DINUTUXIMAB
     Dosage: UNK, CYCLICAL (CYCLE 6)
     Route: 041
     Dates: start: 20220308, end: 20220311
  7. FILGRASTIM [Suspect]
     Active Substance: FILGRASTIM
     Indication: Neuroblastoma
     Dosage: UNK (CYCLE 1)
     Route: 058
  8. FILGRASTIM [Suspect]
     Active Substance: FILGRASTIM
     Dosage: UNK (CYCLE 3)
     Route: 058
     Dates: start: 20211126
  9. FILGRASTIM [Suspect]
     Active Substance: FILGRASTIM
     Dosage: UNK (CYCLE 5)
     Route: 058
     Dates: start: 20220204
  10. TECELEUKIN [Suspect]
     Active Substance: TECELEUKIN
     Indication: Neuroblastoma
     Dosage: UNK (CYCLE 2)
     Route: 041
     Dates: start: 20211025, end: 20211102
  11. TECELEUKIN [Suspect]
     Active Substance: TECELEUKIN
     Dosage: UNK (CYCLE 4)
     Route: 065
     Dates: start: 20211228, end: 20220105
  12. TECELEUKIN [Suspect]
     Active Substance: TECELEUKIN
     Dosage: UNK (RESUMED WITH HALF DOSE)
     Route: 065
     Dates: start: 20220106
  13. TECELEUKIN [Suspect]
     Active Substance: TECELEUKIN
     Dosage: 750,000 UNITS/M2 CYCLICAL (CYCLE 6)
     Route: 041
     Dates: start: 20220301, end: 20220304
  14. TECELEUKIN [Suspect]
     Active Substance: TECELEUKIN
     Dosage: 500,000 UNITS/M2 CYCLICAL (CYCLE 6)
     Route: 041
     Dates: start: 20220308, end: 20220311
  15. ACETAMINOPHEN [Concomitant]
     Active Substance: ACETAMINOPHEN
     Indication: Antipyresis
     Dosage: UNK
     Route: 041
  16. ACETAMINOPHEN [Concomitant]
     Active Substance: ACETAMINOPHEN
     Dosage: UNK (IN CYCLE 3)
     Route: 041
     Dates: start: 20211129, end: 20211202
  17. HYDROXYZINE HYDROCHLORIDE [Concomitant]
     Active Substance: HYDROXYZINE HYDROCHLORIDE
     Indication: Product used for unknown indication
     Dosage: UNK
     Route: 065
     Dates: start: 20211129, end: 20211202
  18. MORPHINE HYDROCHLORIDE [Concomitant]
     Active Substance: MORPHINE HYDROCHLORIDE
     Indication: Pain
     Dosage: UNK
     Route: 041
  19. LASIX [Concomitant]
     Active Substance: FUROSEMIDE
     Indication: Face oedema
     Dosage: UNK
     Route: 065
     Dates: start: 20220208, end: 20220211
  20. LASIX [Concomitant]
     Active Substance: FUROSEMIDE
     Dosage: UNK
     Route: 065
     Dates: start: 20220309, end: 20220312

REACTIONS (18)
  - Pneumatosis intestinalis [Recovered/Resolved]
  - Capillary leak syndrome [Unknown]
  - Hypoxia [Recovered/Resolved]
  - C-reactive protein increased [Not Recovered/Not Resolved]
  - Pain [Recovered/Resolved]
  - Infusion related reaction [Recovered/Resolved]
  - Pyrexia [Recovered/Resolved]
  - Abdominal pain [Not Recovered/Not Resolved]
  - Platelet count decreased [Not Recovered/Not Resolved]
  - Hypoalbuminaemia [Not Recovered/Not Resolved]
  - Hyponatraemia [Recovered/Resolved]
  - Aspartate aminotransferase increased [Not Recovered/Not Resolved]
  - Alanine aminotransferase increased [Not Recovered/Not Resolved]
  - Anaemia [Not Recovered/Not Resolved]
  - Face oedema [Recovered/Resolved]
  - Eosinophil count increased [Not Recovered/Not Resolved]
  - Gamma-glutamyltransferase increased [Not Recovered/Not Resolved]
  - Weight increased [Recovered/Resolved]

NARRATIVE: CASE EVENT DATE: 20210927
